FAERS Safety Report 8537467-3 (Version None)
Quarter: 2012Q3

REPORT INFORMATION
  Report Type: 
  Country: None (occurrence: None)
  Receive Date: 20120725
  Receipt Date: 20120717
  Transmission Date: 20120928
  Serious: Yes (Other)
  Sender: FDA-Public Use
  Company Number: FR-TEVA-341014ISR

PATIENT
  Sex: Female

DRUGS (3)
  1. COPAXONE [Suspect]
     Indication: MULTIPLE SCLEROSIS
     Dosage: 20 MILLIGRAM;
     Route: 058
     Dates: start: 20120101, end: 20120505
  2. FLUOXETINE [Concomitant]
     Indication: DEPRESSED MOOD
     Dosage: 20 MILLIGRAM;
     Route: 048
     Dates: start: 20110101
  3. GADOLINIUM [Interacting]
     Indication: NUCLEAR MAGNETIC RESONANCE IMAGING BRAIN
     Route: 042
     Dates: start: 20120503, end: 20120503

REACTIONS (15)
  - HYPERHIDROSIS [None]
  - FACE OEDEMA [None]
  - MALAISE [None]
  - DRUG HYPERSENSITIVITY [None]
  - HYPOAESTHESIA [None]
  - VISION BLURRED [None]
  - DRUG INTERACTION [None]
  - PARAESTHESIA [None]
  - TREMOR [None]
  - DYSPNOEA [None]
  - TINNITUS [None]
  - ABDOMINAL PAIN [None]
  - NAUSEA [None]
  - ERYTHEMA [None]
  - WEIGHT INCREASED [None]
